FAERS Safety Report 23300791 (Version 1)
Quarter: 2023Q4

REPORT INFORMATION
  Report Type: Spontaneous
  Country: CN (occurrence: CN)
  Receive Date: 20231215
  Receipt Date: 20231215
  Transmission Date: 20240109
  Serious: Yes (Hospitalization)
  Sender: FDA-Public Use
  Company Number: CN-MLMSERVICE-20231122-4680852-1

PATIENT
  Age: 20 Year
  Sex: Female

DRUGS (5)
  1. ALPRAZOLAM [Suspect]
     Active Substance: ALPRAZOLAM
     Indication: Product used for unknown indication
     Dosage: UNK
     Route: 048
  2. CHLORPHENIRAMINE MALEATE [Suspect]
     Active Substance: CHLORPHENIRAMINE MALEATE
     Indication: Product used for unknown indication
     Dosage: UNK
     Route: 048
  3. VALPROATE [Suspect]
     Active Substance: VALPROIC ACID
     Indication: Product used for unknown indication
     Dosage: UNK
     Route: 048
  4. ESTAZOLAM [Suspect]
     Active Substance: ESTAZOLAM
     Indication: Product used for unknown indication
     Dosage: UNK
     Route: 048
  5. SALICYLIC ACID [Suspect]
     Active Substance: BENZETHONIUM CHLORIDE\DEXTROMETHORPHAN HYDROBROMIDE\DYCLONINE HYDROCHLORIDE\GUAIFENESIN\SALICYLIC AC
     Indication: Product used for unknown indication
     Dosage: UNK
     Route: 048

REACTIONS (7)
  - Abdominal pain upper [Unknown]
  - Poisoning deliberate [Recovered/Resolved]
  - Asthenia [Unknown]
  - Intentional overdose [Recovered/Resolved]
  - Dizziness [Unknown]
  - Headache [Unknown]
  - Somnolence [Unknown]
